FAERS Safety Report 6390953-7 (Version None)
Quarter: 2009Q4

REPORT INFORMATION
  Report Type: 
  Country: None (occurrence: None)
  Receive Date: 20091001
  Receipt Date: 20090706
  Transmission Date: 20100525
  Serious: No
  Sender: FDA-Public Use
  Company Number: 1000007246

PATIENT
  Age: 44 Year
  Sex: Female

DRUGS (1)
  1. BYSTOLIC [Suspect]
     Indication: MITRAL VALVE PROLAPSE
     Dosage: 2.5 MG (2.5 MG,) ORAL
     Route: 048
     Dates: start: 20090401

REACTIONS (1)
  - ABDOMINAL PAIN UPPER [None]
